FAERS Safety Report 4454547-2 (Version None)
Quarter: 2004Q3

REPORT INFORMATION
  Report Type: 
  Country: None (occurrence: None)
  Receive Date: 20040826
  Receipt Date: 20040514
  Transmission Date: 20050211
  Serious: No
  Sender: FDA-Public Use
  Company Number: WAES 0405USA01101

PATIENT
  Age: 65 Year
  Sex: Female
  Weight: 87.0906 kg

DRUGS (4)
  1. ZETIA [Suspect]
     Indication: HYPERLIPIDAEMIA
     Dosage: 10 MG/DAILY/PO
     Route: 048
     Dates: start: 20040413, end: 20040512
  2. VALIUM [Concomitant]
  3. ASPIRIN [Concomitant]
  4. ATENOLOL [Concomitant]

REACTIONS (7)
  - AGITATION [None]
  - DEPRESSION [None]
  - EPISTAXIS [None]
  - MALAISE [None]
  - RHINITIS [None]
  - SINUSITIS [None]
  - SUICIDAL IDEATION [None]
